FAERS Safety Report 16925404 (Version 1)
Quarter: 2019Q4

REPORT INFORMATION
  Report Type: Report from Study
  Country: US (occurrence: US)
  Receive Date: 20191016
  Receipt Date: 20191016
  Transmission Date: 20200122
  Serious: Yes (Other)
  Sender: FDA-Public Use
  Company Number: US-GLAXOSMITHKLINE-US2019TSO174142

PATIENT
  Age: 30 Year
  Sex: Female

DRUGS (1)
  1. NIRAPARIB [Suspect]
     Active Substance: NIRAPARIB
     Indication: PRODUCT USED FOR UNKNOWN INDICATION
     Dosage: 200 MG, QD
     Route: 048
     Dates: start: 20190606

REACTIONS (8)
  - Haematochezia [Unknown]
  - Abdominal pain lower [Unknown]
  - Pain [Unknown]
  - Laboratory test abnormal [Unknown]
  - Ascites [Unknown]
  - Mass [Unknown]
  - Dyspnoea [Unknown]
  - Product dose omission [Unknown]

NARRATIVE: CASE EVENT DATE: 201909
